FAERS Safety Report 9346173 (Version 1)
Quarter: 2013Q2

REPORT INFORMATION
  Report Type: Spontaneous
  Country: US (occurrence: US)
  Receive Date: 20130613
  Receipt Date: 20130613
  Transmission Date: 20140414
  Serious: No
  Sender: FDA-Public Use
  Company Number: US-BIOGENIDEC-2013BI052456

PATIENT
  Age: 43 Year
  Sex: Female

DRUGS (3)
  1. AVONEX [Suspect]
     Indication: MULTIPLE SCLEROSIS
     Route: 030
     Dates: start: 20130411
  2. ANTI-INFLAMMATORY MEDICATION [Concomitant]
  3. IBUPROFEN [Concomitant]

REACTIONS (2)
  - Muscle spasms [Recovered/Resolved]
  - Diarrhoea [Unknown]
